FAERS Safety Report 5977652-8 (Version None)
Quarter: 2008Q4

REPORT INFORMATION
  Report Type: 
  Country: None (occurrence: None)
  Receive Date: 20081125
  Receipt Date: 20081120
  Transmission Date: 20090506
  Serious: Yes (Other)
  Sender: FDA-Public Use
  Company Number: 2008SP002956

PATIENT
  Age: 58 Year
  Sex: Male
  Weight: 73.6 kg

DRUGS (5)
  1. LUNESTA [Suspect]
     Indication: INSOMNIA
     Dosage: 3 MG; HS; ORAL
     Route: 048
     Dates: start: 20081006
  2. METOPROLOL TARTRATE [Concomitant]
  3. ALDORIL 15 [Concomitant]
  4. PRILOSEC [Concomitant]
  5. ANTIBIOTICS [Concomitant]

REACTIONS (2)
  - LYMPHADENOPATHY [None]
  - THROAT CANCER [None]
